FAERS Safety Report 20429633 (Version 1)
Quarter: 2022Q1

REPORT INFORMATION
  Report Type: Report from Study
  Country: FR (occurrence: FR)
  Receive Date: 20220204
  Receipt Date: 20220204
  Transmission Date: 20220423
  Serious: Yes (Hospitalization)
  Sender: FDA-Public Use
  Company Number: FR-SERVIER-S19008142

PATIENT

DRUGS (10)
  1. ONCASPAR [Suspect]
     Active Substance: PEGASPARGASE
     Indication: Acute lymphocytic leukaemia
     Dosage: 3000 IU, ON DAYS 4 AND 43
     Route: 042
     Dates: start: 20190517, end: 20190703
  2. VINCRISTINE SULFATE [Suspect]
     Active Substance: VINCRISTINE SULFATE
     Indication: Acute lymphocytic leukaemia
     Dosage: 1.8 MG, ON DAYS 1, 8, 15 AND 43
     Route: 042
     Dates: start: 20190514, end: 20190703
  3. DOXORUBICIN HYDROCHLORIDE [Suspect]
     Active Substance: DOXORUBICIN HYDROCHLORIDE
     Indication: Acute lymphocytic leukaemia
     Dosage: 30 MG, ON DAYS 1, 8 AND 15
     Route: 042
     Dates: start: 20190514, end: 20190528
  4. DEXAMETHASONE [Suspect]
     Active Substance: DEXAMETHASONE
     Indication: Acute lymphocytic leukaemia
     Dosage: 12 MG, ON DAYS 1 TO 8 AND UNK DAYS
     Route: 048
     Dates: start: 20190514
  5. TN UNSPECIFIED [Concomitant]
     Indication: Acute lymphocytic leukaemia
     Dosage: 15 MG, ON DAYS 1 AND 31
     Route: 037
     Dates: start: 20190517, end: 20190621
  6. CYTARABINE [Suspect]
     Active Substance: CYTARABINE
     Indication: Acute lymphocytic leukaemia
     Dosage: 30 MG, ON DAYS 4 AND 31
     Route: 037
     Dates: start: 20190517, end: 20190621
  7. CYTARABINE [Suspect]
     Active Substance: CYTARABINE
     Dosage: 90 MG, ON DAYS 31-34 AND 38-41
     Route: 042
     Dates: start: 20190621, end: 20190701
  8. TN UNSPECIFIED [Concomitant]
     Indication: Acute lymphocytic leukaemia
     Dosage: 15 MG, ON DAYS 4 AND 31
     Route: 037
     Dates: start: 20190517, end: 20190621
  9. THIOGUANINE [Suspect]
     Active Substance: THIOGUANINE
     Indication: Acute lymphocytic leukaemia
     Dosage: 60 MG, ON DAYS 29 TO 42
     Route: 048
     Dates: start: 20190619, end: 20190702
  10. CYCLOPHOSPHAMIDE [Suspect]
     Active Substance: CYCLOPHOSPHAMIDE
     Indication: Acute lymphocytic leukaemia
     Dosage: 1220 MG, ONE DOSE ON DAY 29
     Route: 042
     Dates: start: 20190619, end: 20190619

REACTIONS (2)
  - Cholecystitis [Not Recovered/Not Resolved]
  - Sepsis [Not Recovered/Not Resolved]

NARRATIVE: CASE EVENT DATE: 20190704
